FAERS Safety Report 7613114-X (Version None)
Quarter: 2011Q3

REPORT INFORMATION
  Report Type: 
  Country: None (occurrence: None)
  Receive Date: 20110708
  Receipt Date: 20110629
  Transmission Date: 20111222
  Serious: Yes (Other)
  Sender: FDA-Public Use
  Company Number: 1000020340

PATIENT
  Age: 62 Year
  Sex: Male

DRUGS (8)
  1. PREDNISOLONE [Concomitant]
  2. SYMIBCORT (BUDESONIDE, FORMOTEROL FUMARATE) (320 MICROGRAM(S)/KILOGRAM [Concomitant]
  3. STATIN (NOS) (STATIN NOS)) (STATIN (NOS)) [Concomitant]
  4. ROFLUMILAST (ROFLUMILAST) (TABLETS) [Suspect]
     Indication: CHRONIC OBSTRUCTIVE PULMONARY DISEASE
     Dosage: 1 DF (DOSAGE FORMS,1 IN 1 D),ORAL
     Route: 048
     Dates: start: 20110303, end: 20110407
  5. OXYGEN (OXYGEN) (OXYGEN) [Concomitant]
  6. SPIRIVA (TIOTROPIUM BROMIDE) (TIOTROPIUM BROMIDE) [Concomitant]
  7. ROFLUMILAST (ROFLUMILAST) (TABLETS) [Suspect]
     Indication: CHRONIC OBSTRUCTIVE PULMONARY DISEASE
     Dosage: 1 DOSAGE FORM (1 DOSAGE FORMS,1 IN 1 D),ORAL
     Route: 048
     Dates: start: 20101018, end: 20101108
  8. SALBUTAMOL (SALBUTAMOL) (SALBUTAMOL) [Concomitant]

REACTIONS (14)
  - ALANINE AMINOTRANSFERASE INCREASED [None]
  - BLOOD ALKALINE PHOSPHATASE INCREASED [None]
  - BILE DUCT OBSTRUCTION [None]
  - MUSCLE SPASMS [None]
  - GAMMA-GLUTAMYLTRANSFERASE INCREASED [None]
  - BILIRUBIN CONJUGATED INCREASED [None]
  - INITIAL INSOMNIA [None]
  - ASPARTATE AMINOTRANSFERASE INCREASED [None]
  - CHOLANGITIS CHRONIC [None]
  - C-REACTIVE PROTEIN INCREASED [None]
  - LIVER INJURY [None]
  - HEPATIC SIDEROSIS [None]
  - HEART RATE INCREASED [None]
  - BILIARY FIBROSIS [None]
